FAERS Safety Report 16801068 (Version 1)
Quarter: 2019Q3

REPORT INFORMATION
  Report Type: Spontaneous
  Country: US (occurrence: US)
  Receive Date: 20190912
  Receipt Date: 20190912
  Transmission Date: 20191005
  Serious: No
  Sender: FDA-Public Use
  Company Number: US-ASTELLAS-2019US022880

PATIENT
  Age: 88 Year
  Sex: Male

DRUGS (1)
  1. XTANDI [Suspect]
     Active Substance: ENZALUTAMIDE
     Indication: PRODUCT USED FOR UNKNOWN INDICATION
     Dosage: 160 MG, TWICE DAILY (2 CAPSULES IN MORNING AND 2 CAPSULES IN AFTERNOON)
     Route: 065
     Dates: start: 20190501

REACTIONS (4)
  - Nausea [Unknown]
  - Asthenia [Unknown]
  - Decreased appetite [Unknown]
  - Inappropriate schedule of product administration [Unknown]

NARRATIVE: CASE EVENT DATE: 201905
